FAERS Safety Report 8175443-3 (Version None)
Quarter: 2012Q1

REPORT INFORMATION
  Report Type: 
  Country: None (occurrence: None)
  Receive Date: 20120229
  Receipt Date: 20120221
  Transmission Date: 20120608
  Serious: Yes (Hospitalization)
  Sender: FDA-Public Use
  Company Number: US-ROCHE-1042720

PATIENT
  Sex: Male
  Weight: 89.438 kg

DRUGS (1)
  1. XELODA [Suspect]
     Indication: RECTAL CANCER
     Route: 048
     Dates: start: 20111220, end: 20120221

REACTIONS (4)
  - GASTRIC PERFORATION [None]
  - ERYTHEMA [None]
  - SKIN EXFOLIATION [None]
  - SKIN FISSURES [None]
